FAERS Safety Report 5676457-5 (Version None)
Quarter: 2008Q2

REPORT INFORMATION
  Report Type: 
  Country: None (occurrence: None)
  Receive Date: 20080310
  Receipt Date: 20080211
  Transmission Date: 20081010
  Serious: Yes (Other)
  Sender: FDA-Public Use
  Company Number: 08-085

PATIENT
  Age: 41 Year
  Sex: Male
  Weight: 111.1313 kg

DRUGS (1)
  1. ALEVE [Suspect]
     Indication: BACK PAIN
     Dosage: 220 MG, DAILY, ORAL
     Route: 048
     Dates: start: 20080122, end: 20080204

REACTIONS (1)
  - FAECES DISCOLOURED [None]
